FAERS Safety Report 7216162-7 (Version None)
Quarter: 2011Q1

REPORT INFORMATION
  Report Type: 
  Country: None (occurrence: None)
  Receive Date: 20110107
  Receipt Date: 20101227
  Transmission Date: 20110831
  Serious: Yes (Hospitalization)
  Sender: FDA-Public Use
  Company Number: DE-MYLANLABS-2010S1022243

PATIENT
  Age: 80 Year
  Sex: Male
  Weight: 76 kg

DRUGS (11)
  1. BISOPROLOL [Concomitant]
     Indication: HYPERTENSION
     Route: 048
     Dates: start: 20090101
  2. FORMOTEROL FUMARATE [Concomitant]
     Indication: EMPHYSEMA
     Route: 055
     Dates: start: 20081201
  3. BEROTEC [Concomitant]
     Indication: EMPHYSEMA
     Route: 055
     Dates: start: 20081201
  4. CIPROFLOXACIN [Suspect]
     Indication: NASOPHARYNGITIS
     Route: 048
     Dates: start: 20100812, end: 20100816
  5. CANDESARTAN [Concomitant]
     Indication: HYPERTENSION
     Route: 048
     Dates: start: 20090201
  6. PENTAERYTHRITOL TETRANITRATE [Concomitant]
     Indication: CORONARY ARTERY DISEASE
     Route: 048
     Dates: start: 20100301
  7. SIMVASTATIN [Concomitant]
     Indication: HYPERLIPIDAEMIA
     Route: 048
     Dates: start: 20090101
  8. PENTASA [Concomitant]
     Indication: INFLAMMATORY BOWEL DISEASE
     Route: 048
     Dates: start: 20100907
  9. PANTOZOL [Interacting]
     Indication: PROPHYLAXIS AGAINST GASTROINTESTINAL ULCER
     Route: 048
     Dates: start: 20090101
  10. ACETYLSALICYLIC ACID [Concomitant]
     Indication: ISCHAEMIC HEART DISEASE PROPHYLAXIS
     Route: 048
     Dates: start: 20081201
  11. TORASEMID [Concomitant]
     Indication: HYPERTENSION
     Route: 048
     Dates: start: 20100301

REACTIONS (2)
  - DRUG INTERACTION [None]
  - PSEUDOMEMBRANOUS COLITIS [None]
